FAERS Safety Report 8517270-0 (Version None)
Quarter: 2012Q3

REPORT INFORMATION
  Report Type: 
  Country: None (occurrence: None)
  Receive Date: 20120718
  Receipt Date: 20120713
  Transmission Date: 20120928
  Serious: Yes (Hospitalization, Other)
  Sender: FDA-Public Use
  Company Number: US-PFIZER INC-2012138710

PATIENT
  Sex: Female
  Weight: 53.968 kg

DRUGS (9)
  1. GLIMEPIRIDE [Concomitant]
     Indication: DIABETES MELLITUS
     Dosage: 2 MG, 2X/DAY
  2. GLIMEPIRIDE [Concomitant]
     Dosage: UNK
  3. NORVASC [Suspect]
     Dosage: UNK, 1X/DAY
     Route: 048
     Dates: start: 20020101
  4. CLONIDINE [Concomitant]
     Dosage: UNK
  5. CLONIDINE [Concomitant]
     Indication: HYPERTENSION
     Dosage: 0.1 MG, UNK
  6. NORVASC [Suspect]
     Indication: HYPERTENSION
     Dosage: 5 MG, UNK
     Route: 048
     Dates: start: 20020101, end: 20120301
  7. NORVASC [Suspect]
     Dosage: UNK
     Route: 048
     Dates: end: 20120301
  8. LISINOPRIL [Concomitant]
     Dosage: UNK
  9. LISINOPRIL [Concomitant]
     Indication: HYPERTENSION
     Dosage: 10 MG, 2X/DAY

REACTIONS (12)
  - GINGIVAL DISCOLOURATION [None]
  - MALAISE [None]
  - EYE DISORDER [None]
  - ALOPECIA [None]
  - BLOOD PRESSURE INADEQUATELY CONTROLLED [None]
  - SWELLING [None]
  - CEREBRAL THROMBOSIS [None]
  - CELLULITIS [None]
  - VISUAL IMPAIRMENT [None]
  - LOOSE TOOTH [None]
  - WEIGHT DECREASED [None]
  - PAIN [None]
